FAERS Safety Report 20684515 (Version 1)
Quarter: 2022Q2

REPORT INFORMATION
  Report Type: Spontaneous
  Country: US (occurrence: US)
  Receive Date: 20220407
  Receipt Date: 20220407
  Transmission Date: 20220721
  Serious: No
  Sender: FDA-Public Use
  Company Number: US-ORGANON-O2203USA003028

PATIENT
  Age: 31 Year
  Sex: Female

DRUGS (1)
  1. CELESTONE SOLUSPAN [Suspect]
     Active Substance: BETAMETHASONE ACETATE\BETAMETHASONE SODIUM PHOSPHATE
     Dosage: 12 MILLIGRAM GIVEN FOR TWO DOSES 24 H APART, WITH THE FIRST DOSE AT 35 WEEKS AND AND 6 DAYS GESTATIO
     Route: 030

REACTIONS (1)
  - Maternal exposure during pregnancy [Recovered/Resolved]
